FAERS Safety Report 8419369 (Version 4)
Quarter: 2013Q4

REPORT INFORMATION
  Report Type: Report from Study
  Country: CA (occurrence: CA)
  Receive Date: 20120221
  Receipt Date: 20131011
  Transmission Date: 20140711
  Serious: Yes (Other)
  Sender: FDA-Public Use
  Company Number: PHHY2011CA75202

PATIENT
  Sex: Female

DRUGS (10)
  1. GILENYA [Suspect]
     Indication: RELAPSING-REMITTING MULTIPLE SCLEROSIS
     Dosage: 0.5 MG, QD
     Route: 048
     Dates: start: 20110718
  2. GILENYA [Suspect]
     Dosage: 0.5 MG, QOD
     Route: 048
  3. SYNTHROID [Concomitant]
  4. CONCERTA [Concomitant]
  5. LAMICTAL [Concomitant]
  6. ELAVIL [Concomitant]
  7. MIRENA [Concomitant]
  8. VITAMIN D [Concomitant]
  9. TYLENOL [Concomitant]
  10. AVENTYL [Concomitant]
     Dosage: 10 OT, QHS

REACTIONS (28)
  - Panic attack [Unknown]
  - Stress [Unknown]
  - Eye disorder [Unknown]
  - Ocular hyperaemia [Unknown]
  - Self esteem decreased [Unknown]
  - Negative thoughts [Recovered/Resolved]
  - Palpitations [Unknown]
  - Fall [Unknown]
  - Vertigo [Unknown]
  - Nausea [Unknown]
  - Malaise [Unknown]
  - Disturbance in attention [Unknown]
  - Multiple sclerosis relapse [Unknown]
  - Dysarthria [Unknown]
  - Vision blurred [Unknown]
  - Blepharospasm [Recovered/Resolved]
  - Muscle spasms [Recovering/Resolving]
  - Hypoaesthesia [Recovered/Resolved]
  - Urinary retention [Unknown]
  - Fatigue [Unknown]
  - Muscular weakness [Unknown]
  - Mood altered [Unknown]
  - Sensory loss [Unknown]
  - Paraesthesia [Unknown]
  - Dizziness [Unknown]
  - Dyspnoea [Unknown]
  - Drug ineffective [Unknown]
  - Prescribed underdose [Unknown]
